FAERS Safety Report 23732391 (Version 1)
Quarter: 2024Q2

REPORT INFORMATION
  Report Type: Spontaneous
  Country: US (occurrence: US)
  Receive Date: 20240411
  Receipt Date: 20240411
  Transmission Date: 20240716
  Serious: Yes (Hospitalization, Other)
  Sender: FDA-Public Use
  Company Number: US-009507513-2404USA004845

PATIENT
  Age: 86 Year
  Sex: Male

DRUGS (1)
  1. KEYTRUDA [Suspect]
     Active Substance: PEMBROLIZUMAB
     Indication: Malignant melanoma
     Dosage: UNK, CYCLICAL

REACTIONS (3)
  - Prosthetic cardiac valve stenosis [Recovered/Resolved]
  - Prosthetic cardiac valve calcification [Recovered/Resolved]
  - Prosthetic cardiac valve malfunction [Unknown]
